FAERS Safety Report 9885919 (Version 1)
Quarter: 2014Q1

REPORT INFORMATION
  Report Type: Spontaneous
  Country: US (occurrence: US)
  Receive Date: 20140210
  Receipt Date: 20140210
  Transmission Date: 20141002
  Serious: Yes (Hospitalization, Other)
  Sender: FDA-Public Use
  Company Number: US-ACTAVIS-2014-01772

PATIENT
  Age: 78 Year
  Sex: Female
  Weight: 74 kg

DRUGS (12)
  1. OXALIPLATIN (ATLLC) [Suspect]
     Indication: COLON CANCER STAGE II
     Dosage: 85 MG/M2 ON DAY 1,  REPEATED EVERY TWO WEEKS/ON THE SECOND CYCLE
     Route: 065
  2. CALCIUM FOLINATE (UNKNOWN) [Suspect]
     Indication: COLON CANCER STAGE II
     Dosage: 400 MG/M2  ON DAY 1,  REPEATED EVERY TWO WEEKS/ON THE SECOND CYCLE
     Route: 065
  3. 5-FLUOROURACIL /00098801/ [Suspect]
     Indication: COLON CANCER STAGE II
     Dosage: 400 MG/M2 ON DAY 1,  REPEATED EVERY TWO WEEKS/ON THE SECOND CYCLE
     Route: 065
  4. 5-FLUOROURACIL /00098801/ [Suspect]
     Dosage: 2400 MG/M2 CONTINUOUS INFUSION OVER DAYS 1 AND 2 - 46 HOURS/EVERY TWO WEEKS
     Route: 042
  5. SERTRALINE [Concomitant]
     Indication: PRODUCT USED FOR UNKNOWN INDICATION
     Dosage: 50 MG, DAILY
     Route: 048
  6. LISINOPRIL [Concomitant]
     Indication: PRODUCT USED FOR UNKNOWN INDICATION
     Dosage: 40 MG, DAILY
     Route: 048
  7. ATENOLOL [Concomitant]
     Indication: PRODUCT USED FOR UNKNOWN INDICATION
     Dosage: 50 MG, DAILY
     Route: 048
  8. FOLIC ACID [Concomitant]
     Indication: PRODUCT USED FOR UNKNOWN INDICATION
     Dosage: 0.4 MG, DAILY
     Route: 048
  9. SIMVASTATIN [Concomitant]
     Indication: PRODUCT USED FOR UNKNOWN INDICATION
     Dosage: 20 MG, DAILY
     Route: 048
  10. WARFARIN [Concomitant]
     Indication: PRODUCT USED FOR UNKNOWN INDICATION
     Dosage: 1 MG, DAILY
     Route: 048
  11. MEGESTROL ACETATE [Concomitant]
     Indication: SUPPORTIVE CARE
     Dosage: 800 MG, DAILY
     Route: 048
  12. FERROUS FUMARATE [Concomitant]
     Indication: SUPPORTIVE CARE
     Dosage: 324 MG, DAILY
     Route: 048

REACTIONS (9)
  - Organising pneumonia [Recovering/Resolving]
  - Neutropenia [Recovered/Resolved]
  - Thrombocytopenia [Unknown]
  - Anaemia [Unknown]
  - Candida test positive [Unknown]
  - Vomiting [Unknown]
  - Nausea [Unknown]
  - Dizziness [Unknown]
  - Decreased appetite [Unknown]
